FAERS Safety Report 4971834-X (Version None)
Quarter: 2006Q2

REPORT INFORMATION
  Report Type: 
  Country: None (occurrence: None)
  Receive Date: 20060412
  Receipt Date: 20060412
  Transmission Date: 20061013
  Serious: Yes (Life-Threatening)
  Sender: FDA-Public Use
  Company Number: None

PATIENT
  Sex: Male

DRUGS (1)
  1. FLUTICASONE PROPIONATE [Suspect]
     Dosage: USE AS DIRECTED
     Dates: start: 20060321

REACTIONS (3)
  - BLOOD PRESSURE DECREASED [None]
  - SWOLLEN TONGUE [None]
  - VISION BLURRED [None]
